FAERS Safety Report 8159424-1 (Version None)
Quarter: 2012Q1

REPORT INFORMATION
  Report Type: 
  Country: None (occurrence: None)
  Receive Date: 20120223
  Receipt Date: 20120214
  Transmission Date: 20120608
  Serious: Yes (Other)
  Sender: FDA-Public Use
  Company Number: CN-PFIZER INC-2012042031

PATIENT
  Age: 46 Year
  Sex: Female

DRUGS (3)
  1. METHYLPREDNISOLONE [Suspect]
     Dosage: 400 MG, IV INJECTION X 1 DAY
     Route: 042
     Dates: start: 20080712
  2. METHYLPREDNISOLONE [Suspect]
     Dosage: 200 MG, DAILY FOR 4 DAYS
     Route: 042
     Dates: start: 20080713, end: 20080716
  3. PREDNISOLONE [Suspect]
     Dosage: 100 MG, DAILY
     Route: 048

REACTIONS (1)
  - RETINAL DETACHMENT [None]
